FAERS Safety Report 4720187-0 (Version None)
Quarter: 2005Q3

REPORT INFORMATION
  Report Type: 
  Country: None (occurrence: None)
  Receive Date: 20050721
  Receipt Date: 20050711
  Transmission Date: 20060218
  Serious: Yes (Other)
  Sender: FDA-Public Use
  Company Number: BR-ROCHE-410620

PATIENT
  Age: 16 Year
  Sex: Male

DRUGS (2)
  1. CLONAZEPAM [Suspect]
     Indication: NERVOUSNESS
     Route: 048
     Dates: start: 20050715, end: 20050715
  2. UNSPECIFIED DRUGS [Concomitant]

REACTIONS (1)
  - CONVULSION [None]
